FAERS Safety Report 18964672 (Version 1)
Quarter: 2021Q1

REPORT INFORMATION
  Report Type: Spontaneous
  Country: US (occurrence: US)
  Receive Date: 20210303
  Receipt Date: 20210303
  Transmission Date: 20210420
  Serious: No
  Sender: FDA-Public Use
  Company Number: US-AMNEAL PHARMACEUTICALS-2020-AMRX-04067

PATIENT
  Sex: Female

DRUGS (2)
  1. RYTARY [Suspect]
     Active Substance: CARBIDOPA\LEVODOPA
     Indication: PARKINSON^S DISEASE
     Dosage: 61.25/245MG, 2 CAPSULES, 5 /DAY (7AM, 10:30AM, 2PM, 5:30PM AND AT BEDTIME)
     Route: 048
     Dates: start: 20201124, end: 202012
  2. RYTARY [Suspect]
     Active Substance: CARBIDOPA\LEVODOPA
     Dosage: 23.75/95MG, 2 CAPSULES, 5 /DAY, AT 7AM, 10.30AM, 2PM, 5.30PM AND BEDTIME
     Route: 048
     Dates: start: 20210124

REACTIONS (3)
  - Musculoskeletal stiffness [Recovered/Resolved]
  - Feeling jittery [Recovered/Resolved]
  - Muscle rigidity [Recovered/Resolved]

NARRATIVE: CASE EVENT DATE: 2020
